FAERS Safety Report 14186532 (Version 1)
Quarter: 2017Q4

REPORT INFORMATION
  Report Type: Spontaneous
  Country: US (occurrence: US)
  Receive Date: 20171112
  Receipt Date: 20171112
  Transmission Date: 20180321
  Serious: Yes (Life-Threatening, Hospitalization, Disabling)
  Sender: FDA-Public Use
  Company Number: None

PATIENT
  Sex: Male
  Weight: 82.8 kg

DRUGS (1)
  1. OPDIVO [Suspect]
     Active Substance: NIVOLUMAB
     Indication: LUNG CARCINOMA CELL TYPE UNSPECIFIED STAGE IV
     Dates: start: 20170210, end: 20170929

REACTIONS (5)
  - Depression [None]
  - Cognitive disorder [None]
  - Loss of personal independence in daily activities [None]
  - Fatigue [None]
  - Encephalitis autoimmune [None]

NARRATIVE: CASE EVENT DATE: 20171019
